FAERS Safety Report 4658707-7 (Version None)
Quarter: 2005Q2

REPORT INFORMATION
  Report Type: 
  Country: None (occurrence: None)
  Receive Date: 20050510
  Receipt Date: 20050510
  Transmission Date: 20051028
  Serious: No
  Sender: FDA-Public Use
  Company Number: None

PATIENT
  Age: 35 Year
  Sex: Male
  Weight: 99.7913 kg

DRUGS (4)
  1. ELIDEL [Suspect]
     Indication: ECZEMA
     Dosage: APPLIED TOPICALLY TWICE DAILY TO FACE
     Route: 061
     Dates: end: 20041001
  2. ALLEGRA D 24 HOUR [Concomitant]
  3. XALATAN [Concomitant]
  4. TYLENOL (CAPLET) [Concomitant]

REACTIONS (1)
  - NON-HODGKIN'S LYMPHOMA [None]
